FAERS Safety Report 6455872-6 (Version None)
Quarter: 2009Q4

REPORT INFORMATION
  Report Type: 
  Country: None (occurrence: None)
  Receive Date: 20091119
  Receipt Date: 20091104
  Transmission Date: 20100525
  Serious: Yes (Death, Hospitalization)
  Sender: FDA-Public Use
  Company Number: GB-2009-2286

PATIENT
  Age: 62 Year
  Sex: Female

DRUGS (2)
  1. NAVELBINE [Suspect]
     Indication: NON-SMALL CELL LUNG CANCER
     Dosage: 30 MG/M2  IV
     Route: 042
  2. CISPLATIN [Suspect]
     Indication: NON-SMALL CELL LUNG CANCER
     Dosage: 80 MG/M2  IV
     Route: 042

REACTIONS (5)
  - CHEST PAIN [None]
  - LOBAR PNEUMONIA [None]
  - MALAISE [None]
  - NEUTROPENIC SEPSIS [None]
  - RECTAL HAEMORRHAGE [None]
